FAERS Safety Report 25140120 (Version 2)
Quarter: 2025Q2

REPORT INFORMATION
  Report Type: Spontaneous
  Country: US (occurrence: US)
  Receive Date: 20250331
  Receipt Date: 20250505
  Transmission Date: 20250717
  Serious: Yes (Death, Hospitalization)
  Sender: AMGEN
  Company Number: US-PFIZER INC-PV202500035141

PATIENT
  Age: 80 Year
  Sex: Female
  Weight: 66.2 kg

DRUGS (5)
  1. ENBREL [Suspect]
     Active Substance: ETANERCEPT
     Indication: Rheumatoid arthritis
     Dosage: 50 MG, WEEKLY
     Route: 058
  2. ENBREL [Suspect]
     Active Substance: ETANERCEPT
     Route: 058
  3. METOPROLOL [Concomitant]
     Active Substance: METOPROLOL
     Indication: Hypertension
     Dosage: 25 MG, DAILY
  4. METOPROLOL [Concomitant]
     Active Substance: METOPROLOL
     Indication: Ventricular extrasystoles
     Route: 065
  5. PREDNISONE [Concomitant]
     Active Substance: PREDNISONE
     Indication: Rheumatoid arthritis
     Route: 065

REACTIONS (2)
  - Infection [Fatal]
  - Off label use [Unknown]

NARRATIVE: CASE EVENT DATE: 20240801
